FAERS Safety Report 5174225-4 (Version None)
Quarter: 2006Q4

REPORT INFORMATION
  Report Type: 
  Country: None (occurrence: None)
  Receive Date: 20061206
  Receipt Date: 20061122
  Transmission Date: 20070319
  Serious: Yes (Other)
  Sender: FDA-Public Use
  Company Number: 232481

PATIENT
  Age: 50 Year
  Sex: Female
  Weight: 63 kg

DRUGS (5)
  1. AVASTIN [Suspect]
     Indication: CHORIORETINAL ATROPHY
     Dosage: INTRAVITREAL
     Dates: start: 20060601, end: 20060901
  2. AVELOX [Concomitant]
  3. SYNTHROID [Concomitant]
  4. ZYRTEC [Concomitant]
  5. VITAMINS (VITAMINS NOS) [Concomitant]

REACTIONS (7)
  - BLINDNESS UNILATERAL [None]
  - DRUG HYPERSENSITIVITY [None]
  - EYE INFLAMMATION [None]
  - EYE PAIN [None]
  - LACRIMATION INCREASED [None]
  - MYALGIA [None]
  - TENDON PAIN [None]
